FAERS Safety Report 18535885 (Version 1)
Quarter: 2020Q4

REPORT INFORMATION
  Report Type: Spontaneous
  Country: US (occurrence: US)
  Receive Date: 20201123
  Receipt Date: 20201123
  Transmission Date: 20210114
  Serious: No
  Sender: FDA-Public Use
  Company Number: US-ROCHE-2563819

PATIENT

DRUGS (1)
  1. TAMIFLU [Suspect]
     Active Substance: OSELTAMIVIR PHOSPHATE
     Indication: ANTIVIRAL PROPHYLAXIS
     Dosage: ONE TABLET DAILY FOR 7 DAYS ;ONGOING: NO
     Route: 065
     Dates: start: 202002, end: 202002

REACTIONS (3)
  - Extra dose administered [Unknown]
  - Off label use [Unknown]
  - No adverse event [Unknown]
